FAERS Safety Report 12067741 (Version 1)
Quarter: 2016Q1

REPORT INFORMATION
  Report Type: Spontaneous
  Country: US (occurrence: US)
  Receive Date: 20160211
  Receipt Date: 20160211
  Transmission Date: 20160526
  Serious: No
  Sender: FDA-Public Use
  Company Number: US-SMITH AND NEPHEW, INC-2015SMT00004

PATIENT
  Age: 70 Year
  Sex: Male
  Weight: 81.63 kg

DRUGS (13)
  1. FAMOTIDINE. [Concomitant]
     Active Substance: FAMOTIDINE
     Dosage: 20 MG, 2X/DAY
     Dates: start: 2000
  2. REGRANEX [Suspect]
     Active Substance: BECAPLERMIN
     Indication: SKIN ULCER
     Dosage: UNK UNK, 1X/DAY
     Route: 061
     Dates: start: 20141210, end: 20141219
  3. CARVEDILOL. [Concomitant]
     Active Substance: CARVEDILOL
     Dosage: 12.5 UNK, 2X/DAY
     Dates: start: 2000
  4. ASPIRIN. [Concomitant]
     Active Substance: ASPIRIN
     Dosage: 81 MG, 1X/DAY
     Dates: start: 2000
  5. NORVASC [Concomitant]
     Active Substance: AMLODIPINE BESYLATE
     Dosage: 2.5 MG, 1X/DAY
     Dates: start: 2000
  6. LISINOPRIL. [Concomitant]
     Active Substance: LISINOPRIL
     Dosage: 10 MG, 1X/DAY
     Dates: start: 2000
  7. DIGOXIN. [Concomitant]
     Active Substance: DIGOXIN
     Dosage: 0.125 MG, 1X/DAY
     Dates: start: 2000
  8. LORATADINE. [Concomitant]
     Active Substance: LORATADINE
     Dosage: 10 MG, 1X/DAY
     Dates: start: 2000
  9. COLCRYS [Concomitant]
     Active Substance: COLCHICINE
     Dosage: 0.6 MG, 2X/DAY
     Dates: start: 2000
  10. SPIRONOLACTONE. [Concomitant]
     Active Substance: SPIRONOLACTONE
     Dosage: 25 MG, 1X/DAY
     Dates: start: 2000
  11. FUROSEMIDE. [Concomitant]
     Active Substance: FUROSEMIDE
     Dosage: 40 MG, 2X/DAY
     Dates: start: 2000
  12. ALLOPURINOL. [Concomitant]
     Active Substance: ALLOPURINOL
     Dosage: 100 MG, 3X/DAY
     Dates: start: 2000
  13. WARFARIN [Concomitant]
     Active Substance: WARFARIN
     Dosage: 7 MG, 1X/DAY
     Dates: start: 2000

REACTIONS (2)
  - Drug hypersensitivity [Recovered/Resolved]
  - Rash erythematous [Recovered/Resolved]

NARRATIVE: CASE EVENT DATE: 20141217
